FAERS Safety Report 8417957-4 (Version None)
Quarter: 2012Q2

REPORT INFORMATION
  Report Type: 
  Country: None (occurrence: None)
  Receive Date: 20120531
  Receipt Date: 20120531
  Transmission Date: 20120825
  Serious: Yes (Life-Threatening, Other)
  Sender: FDA-Public Use
  Company Number: None

PATIENT
  Age: 34 Year
  Sex: Female
  Weight: 136.0791 kg

DRUGS (1)
  1. MIRENA [Suspect]
     Indication: CONTRACEPTION
     Dosage: 1 DEVICE LONG TERM INTRA-UTERINE
     Route: 015
     Dates: start: 20100811, end: 20110518

REACTIONS (5)
  - SUICIDAL IDEATION [None]
  - WEIGHT INCREASED [None]
  - SELF-INJURIOUS IDEATION [None]
  - AFFECTIVE DISORDER [None]
  - DEPRESSION [None]
